FAERS Safety Report 13610637 (Version 1)
Quarter: 2017Q2

REPORT INFORMATION
  Report Type: Report from Study
  Country: US (occurrence: US)
  Receive Date: 20170605
  Receipt Date: 20170605
  Transmission Date: 20170830
  Serious: Yes (Other)
  Sender: FDA-Public Use
  Company Number: PHEH2017US016682

PATIENT
  Age: 68 Year
  Weight: 100.2 kg

DRUGS (1)
  1. ENTRESTO [Suspect]
     Active Substance: SACUBITRIL\VALSARTAN
     Indication: CARDIAC FAILURE CONGESTIVE
     Dosage: 100 MG, BID
     Route: 048
     Dates: start: 20161212

REACTIONS (2)
  - Cardiac aneurysm [Not Recovered/Not Resolved]
  - Brain hypoxia [Unknown]

NARRATIVE: CASE EVENT DATE: 20170428
